FAERS Safety Report 15196320 (Version 1)
Quarter: 2018Q3

REPORT INFORMATION
  Report Type: Spontaneous
  Country: US (occurrence: US)
  Receive Date: 20180626
  Receipt Date: 20180626
  Transmission Date: 20181010
  Serious: No
  Sender: FDA-Public Use
  Company Number: None

PATIENT
  Age: 29 Year
  Sex: Female
  Weight: 67.5 kg

DRUGS (1)
  1. LOESTRIN 21 DAY [Suspect]
     Active Substance: ETHINYL ESTRADIOL\NORETHINDRONE ACETATE
     Indication: ORAL CONTRACEPTION
     Dosage: ?          QUANTITY:1 TABLET(S);?
     Route: 048

REACTIONS (27)
  - Dizziness [None]
  - Breast enlargement [None]
  - Alopecia [None]
  - Hypertension [None]
  - Headache [None]
  - Vulvovaginal dryness [None]
  - Dyspareunia [None]
  - Coital bleeding [None]
  - Biliary colic [None]
  - Depression [None]
  - Corrective lens user [None]
  - Abdominal distension [None]
  - Libido decreased [None]
  - Hunger [None]
  - Blood cholesterol increased [None]
  - Chromaturia [None]
  - Abdominal discomfort [None]
  - Gallbladder disorder [None]
  - Weight increased [None]
  - Genital disorder female [None]
  - Fatigue [None]
  - Vaginal laceration [None]
  - Atrophy [None]
  - Visual impairment [None]
  - Pyrexia [None]
  - Vulvovaginal pruritus [None]
  - Skin discolouration [None]
